FAERS Safety Report 14933719 (Version 1)
Quarter: 2018Q2

REPORT INFORMATION
  Report Type: Spontaneous
  Country: US (occurrence: US)
  Receive Date: 20180504
  Receipt Date: 20180504
  Transmission Date: 20180711
  Serious: Yes (Disabling)
  Sender: FDA-Public Use
  Company Number: None

PATIENT
  Age: 34 Year
  Sex: Male
  Weight: 117 kg

DRUGS (2)
  1. XYZAL ALLERGY 24HR [Suspect]
     Active Substance: LEVOCETIRIZINE DIHYDROCHLORIDE
     Indication: HYPERSENSITIVITY
     Dosage: ?          QUANTITY:35 TABLET(S);?
     Route: 048
     Dates: start: 20180504, end: 20180504
  2. SPIRONOLACTONE-HCTZ [Concomitant]
     Active Substance: HYDROCHLOROTHIAZIDE\SPIRONOLACTONE

REACTIONS (7)
  - Condition aggravated [None]
  - Depression [None]
  - Abdominal distension [None]
  - Muscular weakness [None]
  - Oedema peripheral [None]
  - Anxiety [None]
  - Fatigue [None]

NARRATIVE: CASE EVENT DATE: 20180504
